FAERS Safety Report 6050138-0 (Version None)
Quarter: 2009Q1

REPORT INFORMATION
  Report Type: 
  Country: None (occurrence: None)
  Receive Date: 20090121
  Receipt Date: 20090112
  Transmission Date: 20090719
  Serious: Yes (Life-Threatening)
  Sender: FDA-Public Use
  Company Number: APP200801194

PATIENT
  Sex: 0

DRUGS (6)
  1. HEPARIN SODIUM [Suspect]
     Indication: THROMBOSIS PROPHYLAXIS
     Dosage: SEE IMAGE
     Route: 040
     Dates: start: 20081130
  2. HEPARIN SODIUM [Suspect]
     Indication: THROMBOSIS PROPHYLAXIS
     Dosage: SEE IMAGE
     Route: 040
     Dates: start: 20081130
  3. HEPARIN SODIUM [Suspect]
     Indication: THROMBOSIS PROPHYLAXIS
     Dosage: SEE IMAGE
     Route: 040
     Dates: start: 20081130
  4. HEPARIN SODIUM INJECTION [Suspect]
  5. HEPARIN SODIUM INJECTION [Suspect]
  6. ISOVUE-370 [Suspect]
     Indication: CATHETERISATION CARDIAC
     Dosage: IN THE CARDIAC CATHETERIZATION LAB
     Dates: start: 20081130

REACTIONS (7)
  - AGITATION [None]
  - ANGIOEDEMA [None]
  - CARDIOGENIC SHOCK [None]
  - CONTRAST MEDIA ALLERGY [None]
  - DRUG HYPERSENSITIVITY [None]
  - OXYGEN SATURATION DECREASED [None]
  - RESPIRATORY DISTRESS [None]
